FAERS Safety Report 8386553-X (Version None)
Quarter: 2012Q2

REPORT INFORMATION
  Report Type: 
  Country: None (occurrence: None)
  Receive Date: 20120525
  Receipt Date: 20110628
  Transmission Date: 20120825
  Serious: No
  Sender: FDA-Public Use
  Company Number: US-GLAXOSMITHKLINE-A0933473A

PATIENT
  Age: 64 Year
  Sex: Female

DRUGS (2)
  1. VITAMIN [Concomitant]
  2. VERAMYST [Suspect]
     Indication: SINUS CONGESTION
     Dosage: 2SPR PER DAY
     Route: 045
     Dates: start: 20110618

REACTIONS (4)
  - VERTIGO [None]
  - FATIGUE [None]
  - DIZZINESS [None]
  - GAIT DISTURBANCE [None]
